FAERS Safety Report 8948489 (Version 1)
Quarter: 2012Q4

REPORT INFORMATION
  Report Type: Spontaneous
  Country: DK (occurrence: None)
  Receive Date: 20121123
  Receipt Date: 20121123
  Transmission Date: 20130627
  Serious: Yes (Life-Threatening, Hospitalization)
  Sender: FDA-Public Use
  Company Number: 2012MA013480

PATIENT
  Age: 78 Year
  Sex: Male

DRUGS (10)
  1. NAPROXEN [Suspect]
     Route: 048
     Dates: end: 20121029
  2. ACETYLSALICYLIC ACID [Suspect]
     Route: 048
     Dates: end: 20121029
  3. DEXAMETHASONE [Suspect]
     Route: 048
  4. LANSOPRAZOLE [Concomitant]
  5. PARACETAMOL [Concomitant]
  6. FUROSEMIDE [Concomitant]
  7. SIMVASTATIN [Concomitant]
  8. TIOTROPIUM BROMIDE [Concomitant]
  9. SERETIDE [Concomitant]
  10. SALBUTAMOL [Concomitant]

REACTIONS (1)
  - Oesophageal haemorrhage [None]
